FAERS Safety Report 8155776-7 (Version None)
Quarter: 2012Q1

REPORT INFORMATION
  Report Type: 
  Country: None (occurrence: None)
  Receive Date: 20120222
  Receipt Date: 20120210
  Transmission Date: 20120608
  Serious: Yes (Other)
  Sender: FDA-Public Use
  Company Number: US-JNJFOC-20120207439

PATIENT
  Sex: Male
  Weight: 123.38 kg

DRUGS (1)
  1. REMICADE [Suspect]
     Indication: RHEUMATOID ARTHRITIS
     Dosage: HAD FOUR INFUSIONS
     Route: 042
     Dates: start: 20110914, end: 20111221

REACTIONS (5)
  - MUSCULAR WEAKNESS [None]
  - ASTHENIA [None]
  - HYPOKINESIA [None]
  - FALL [None]
  - CONTUSION [None]
